FAERS Safety Report 5447289-8 (Version None)
Quarter: 2007Q3

REPORT INFORMATION
  Report Type: 
  Country: None (occurrence: None)
  Receive Date: 20070905
  Receipt Date: 20070905
  Transmission Date: 20080115
  Serious: Yes (Hospitalization)
  Sender: FDA-Public Use
  Company Number: None

PATIENT
  Sex: Female
  Weight: 103 kg

DRUGS (12)
  1. CYCLOPHOSPHAMIDE [Suspect]
     Dosage: 2180 MG
     Dates: end: 20070807
  2. CYTARABINE [Suspect]
     Dosage: 13110 MG
     Dates: end: 20070809
  3. G-CSF (FILGRASTIM, AMGEN) [Suspect]
     Dosage: 5280 MG
     Dates: end: 20070820
  4. METHOTREXATE [Suspect]
     Dosage: 15 MG
     Dates: end: 20070807
  5. ACYCLOVIR [Concomitant]
  6. COMPAZINE [Concomitant]
  7. DIGOXIN [Concomitant]
  8. DILTIAZEM CD [Concomitant]
  9. LEVOTHYROXINE SODIUM [Concomitant]
  10. POTASSIUM CHLORIDE [Concomitant]
  11. PROTONIX [Concomitant]
  12. ZOLOFT [Concomitant]

REACTIONS (11)
  - ARTHRALGIA [None]
  - ARTHRITIS INFECTIVE [None]
  - CHILLS [None]
  - FALL [None]
  - FEBRILE NEUTROPENIA [None]
  - JOINT INJURY [None]
  - JOINT RANGE OF MOTION DECREASED [None]
  - JOINT SWELLING [None]
  - MENISCUS LESION [None]
  - PARAESTHESIA [None]
  - TREMOR [None]
